FAERS Safety Report 7626407-7 (Version None)
Quarter: 2011Q3

REPORT INFORMATION
  Report Type: 
  Country: None (occurrence: None)
  Receive Date: 20110721
  Receipt Date: 20110711
  Transmission Date: 20111222
  Serious: Yes (Other)
  Sender: FDA-Public Use
  Company Number: FR-NAPPMUNDI-GBR-2011-0008522

PATIENT
  Sex: Male

DRUGS (10)
  1. CYMBALTA [Concomitant]
     Dosage: 60 MG, DAILY
     Route: 048
  2. FLUCONAZOLE [Concomitant]
     Dosage: UNK UNK, UNK
  3. OXYCODONE HCL [Suspect]
     Indication: PRODUCT USED FOR UNKNOWN INDICATION
     Dosage: 0.5 MG/ML, Q1H
     Route: 042
     Dates: start: 20110607, end: 20110621
  4. LYRICA [Concomitant]
     Dosage: 150 MG, TID
     Route: 048
  5. CLAMOXYL                           /00249601/ [Concomitant]
     Dosage: UNK UNK, UNK
  6. SPASFON                            /00765801/ [Concomitant]
     Dosage: UNK UNK, UNK
  7. FLAGYL [Concomitant]
  8. CLINOMEL [Concomitant]
     Dosage: UNK UNK, UNK
  9. CLONAZEPAM [Concomitant]
     Dosage: UNK UNK, UNK
  10. BACTRIM [Concomitant]
     Dosage: UNK UNK, UNK

REACTIONS (1)
  - PANCREATITIS [None]
